FAERS Safety Report 16650464 (Version 1)
Quarter: 2019Q3

REPORT INFORMATION
  Report Type: Other
  Country: US (occurrence: US)
  Receive Date: 20190731
  Receipt Date: 20190731
  Transmission Date: 20191004
  Serious: Yes (Hospitalization, Other)
  Sender: FDA-Public Use
  Company Number: US-VISTAPHARM, INC.-VER201907-000677

PATIENT
  Age: 57 Year
  Sex: Female

DRUGS (2)
  1. MORPHINE [Suspect]
     Active Substance: MORPHINE
     Indication: CANCER PAIN
     Dosage: CONTROLLED-RELEASE (120 MG )
     Route: 048
  2. MORPHINE [Suspect]
     Active Substance: MORPHINE
     Dosage: IMMEDIATE-RELEASE (30 - 45 MG EVERY 3 HOURS AS NEEDED)
     Route: 048

REACTIONS (1)
  - Neurotoxicity [Unknown]
